FAERS Safety Report 12090235 (Version 2)
Quarter: 2016Q1

REPORT INFORMATION
  Report Type: Spontaneous
  Country: BE (occurrence: BE)
  Receive Date: 20160218
  Receipt Date: 20160225
  Transmission Date: 20160526
  Serious: Yes (Death)
  Sender: FDA-Public Use
  Company Number: BE-CELGENE-BEL-2016021689

PATIENT
  Age: 70 Year
  Sex: Male
  Weight: 97 kg

DRUGS (5)
  1. RITUXIMAB [Concomitant]
     Active Substance: RITUXIMAB
     Indication: B-CELL LYMPHOMA
     Route: 065
  2. FRAXIPARIN [Concomitant]
     Active Substance: NADROPARIN CALCIUM
     Indication: PRODUCT USED FOR UNKNOWN INDICATION
     Route: 065
  3. REVLIMID [Suspect]
     Active Substance: LENALIDOMIDE
     Indication: B-CELL LYMPHOMA
     Dosage: 18.75 MILLIGRAM
     Route: 048
  4. VLOKEN [Concomitant]
     Indication: HYPERTENSION
     Route: 065
  5. COVERSYL [Concomitant]
     Active Substance: PERINDOPRIL
     Indication: HYPERTENSION
     Route: 065

REACTIONS (6)
  - Diarrhoea [Unknown]
  - Pleural effusion [Unknown]
  - Decreased appetite [Unknown]
  - B-cell lymphoma recurrent [Fatal]
  - Fatigue [Unknown]
  - Weight decreased [Unknown]
